FAERS Safety Report 5579999-6 (Version None)
Quarter: 2007Q4

REPORT INFORMATION
  Report Type: 
  Country: None (occurrence: None)
  Receive Date: 20071227
  Receipt Date: 20071227
  Transmission Date: 20080405
  Serious: Yes (Hospitalization)
  Sender: FDA-Public Use
  Company Number: None

PATIENT
  Sex: Female
  Weight: 83 kg

DRUGS (3)
  1. CLOFARABINE [Suspect]
     Indication: BONE MARROW TRANSPLANT
     Dosage: 76MG DAILY IV DRIP
     Route: 041
     Dates: start: 20071114, end: 20071117
  2. CAMPATH [Suspect]
     Indication: BONE MARROW TRANSPLANT
     Dosage: 20MG DAILY IV DRIP
     Route: 041
     Dates: start: 20071114, end: 20071117
  3. MELPHALAN [Suspect]
     Dosage: 266 MG DAILY IV DRIP
     Route: 041
     Dates: start: 20071126, end: 20071126

REACTIONS (4)
  - CARDIAC FAILURE CONGESTIVE [None]
  - CARDIOMEGALY [None]
  - HYPERVOLAEMIA [None]
  - PULMONARY OEDEMA [None]
